FAERS Safety Report 10478134 (Version 1)
Quarter: 2014Q3

REPORT INFORMATION
  Report Type: Spontaneous
  Country: US (occurrence: US)
  Receive Date: 20140926
  Receipt Date: 20140926
  Transmission Date: 20150326
  Serious: No
  Sender: FDA-Public Use
  Company Number: US-PFIZER INC-2014264256

PATIENT
  Age: 47 Year
  Sex: Female
  Weight: 59 kg

DRUGS (2)
  1. PREMPRO [Suspect]
     Active Substance: ESTROGENS, CONJUGATED\MEDROXYPROGESTERONE ACETATE
     Indication: HORMONE REPLACEMENT THERAPY
     Dosage: UNK,1X/DAY
     Route: 048
     Dates: start: 201409
  2. RELAFEN [Concomitant]
     Active Substance: NABUMETONE
     Indication: MUSCLE RELAXANT THERAPY
     Dosage: 750 MG, UNK

REACTIONS (1)
  - Vaginal haemorrhage [Unknown]

NARRATIVE: CASE EVENT DATE: 201409
